FAERS Safety Report 21589672 (Version 2)
Quarter: 2023Q1

REPORT INFORMATION
  Report Type: Report from Study
  Country: US (occurrence: US)
  Receive Date: 20221114
  Receipt Date: 20230210
  Transmission Date: 20230418
  Serious: Yes (Other)
  Sender: FDA-Public Use
  Company Number: US-ABBVIE-4196335

PATIENT
  Sex: Female

DRUGS (1)
  1. RINVOQ [Suspect]
     Active Substance: UPADACITINIB
     Indication: Rheumatoid arthritis
     Dosage: FIRST ADMIN DATE: 17 MAR 2022
     Route: 048
     Dates: end: 20220901

REACTIONS (8)
  - Medical device removal [Unknown]
  - Medical device implantation [Unknown]
  - Psoriasis [Unknown]
  - Incision site discharge [Unknown]
  - Post procedural infection [Unknown]
  - Medical device site injury [Unknown]
  - Spinal operation [Recovering/Resolving]
  - Post procedural drainage [Unknown]

NARRATIVE: CASE EVENT DATE: 20220101
